FAERS Safety Report 9181461 (Version 2)
Quarter: 2013Q2

REPORT INFORMATION
  Report Type: Spontaneous
  Country: US (occurrence: US)
  Receive Date: 20130322
  Receipt Date: 20130509
  Transmission Date: 20140414
  Serious: Yes (Other)
  Sender: FDA-Public Use
  Company Number: US-PERRIGO-13US002736

PATIENT
  Age: 10 Year
  Sex: Male
  Weight: 30.84 kg

DRUGS (3)
  1. IBUPROFEN CHILD BUBBLEGUM 20 MG/ML 166 [Suspect]
     Indication: PYREXIA
     Dosage: 2 TEASPOONS, SINGLE
     Route: 048
     Dates: start: 20130312, end: 20130312
  2. IBUPROFEN CHILD BUBBLEGUM 20 MG/ML 166 [Suspect]
     Dosage: UNK
     Route: 048
  3. ACETAMINOPHEN [Concomitant]
     Indication: PYREXIA
     Dosage: 320 MG, ONCE AT 1000
     Route: 048
     Dates: start: 20130312, end: 20130312

REACTIONS (5)
  - Lip swelling [Recovered/Resolved]
  - Hypersensitivity [Recovered/Resolved]
  - Swelling face [Recovered/Resolved]
  - Urticaria [Recovered/Resolved]
  - Underdose [Unknown]
